FAERS Safety Report 7701781-1 (Version None)
Quarter: 2011Q3

REPORT INFORMATION
  Report Type: 
  Country: None (occurrence: None)
  Receive Date: 20110822
  Receipt Date: 20110818
  Transmission Date: 20111222
  Serious: Yes (Disabling, Other)
  Sender: FDA-Public Use
  Company Number: CH-PFIZER INC-2011149893

PATIENT
  Age: 29 Year
  Sex: Female

DRUGS (3)
  1. TRAZODONE HCL [Suspect]
     Indication: ANXIETY
     Dosage: 37.5 MG, 1X/DAY
     Route: 048
     Dates: end: 20110401
  2. TRAZODONE HCL [Suspect]
     Indication: DEPRESSION
     Dosage: 75 MG, 1X/DAY
     Route: 048
     Dates: start: 20080401
  3. TRAZODONE HCL [Suspect]
     Indication: AUTONOMIC NERVOUS SYSTEM IMBALANCE

REACTIONS (7)
  - HYPOTENSION [None]
  - TREMOR [None]
  - DECREASED APPETITE [None]
  - NERVOUSNESS [None]
  - ANXIETY DISORDER [None]
  - DRUG WITHDRAWAL SYNDROME [None]
  - AUTONOMIC NERVOUS SYSTEM IMBALANCE [None]
